FAERS Safety Report 7832428-1 (Version None)
Quarter: 2011Q4

REPORT INFORMATION
  Report Type: 
  Country: None (occurrence: None)
  Receive Date: 20111022
  Receipt Date: 20111013
  Transmission Date: 20120403
  Serious: No
  Sender: FDA-Public Use
  Company Number: US-BAYER-2011-065830

PATIENT
  Age: 52 Year
  Sex: Female

DRUGS (1)
  1. GADAVIST [Suspect]
     Indication: PINEAL NEOPLASM
     Dosage: 10 ML, ONCE
     Dates: start: 20110721, end: 20110721

REACTIONS (1)
  - VOMITING [None]
